FAERS Safety Report 23322263 (Version 1)
Quarter: 2023Q4

REPORT INFORMATION
  Report Type: Report from Study
  Country: US (occurrence: US)
  Receive Date: 20231220
  Receipt Date: 20231220
  Transmission Date: 20240110
  Serious: Yes (Hospitalization)
  Sender: FDA-Public Use
  Company Number: US-ALKERMES INC.-ALK-2023-004666

PATIENT

DRUGS (8)
  1. BUPRENORPHINE [Suspect]
     Active Substance: BUPRENORPHINE
     Indication: Product used for unknown indication
     Dosage: UNK, Q3WK, WEEKS 0, 3, AND 6
     Route: 030
  2. PLACEBO [Suspect]
     Active Substance: UNSPECIFIED INGREDIENT
     Indication: Product used for unknown indication
     Dosage: UNK, Q3WK, WEEKS 0, 3, AND 6
     Route: 030
  3. VIVITROL [Suspect]
     Active Substance: NALTREXONE
     Indication: Product used for unknown indication
     Dosage: UNK, Q3WK, WEEKS 0, 3, AND 6
     Route: 030
  4. VIVITROL [Suspect]
     Active Substance: NALTREXONE
     Indication: Product used for unknown indication
     Dosage: UNK, Q3WK, WEEKS 0, 3, AND 6
     Route: 030
  5. BUPRENORPHINE [Suspect]
     Active Substance: BUPRENORPHINE
     Dosage: UNK, Q4WK, WEEKS 0, 4
     Route: 048
  6. PLACEBO [Suspect]
     Active Substance: UNSPECIFIED INGREDIENT
     Dosage: UNK, Q4WK, WEEKS 0, 4
     Route: 048
  7. VIVITROL [Suspect]
     Active Substance: NALTREXONE
     Dosage: UNK, Q4WK, WEEKS 0, 4
     Route: 048
  8. VIVITROL [Suspect]
     Active Substance: NALTREXONE
     Dosage: UNK, Q4WK, WEEKS 0, 4
     Route: 048

REACTIONS (1)
  - Anaemia [Unknown]

NARRATIVE: CASE EVENT DATE: 20231204
